FAERS Safety Report 24179249 (Version 3)
Quarter: 2025Q1

REPORT INFORMATION
  Report Type: Spontaneous
  Country: US (occurrence: US)
  Receive Date: 20240806
  Receipt Date: 20250312
  Transmission Date: 20250409
  Serious: No
  Sender: MERCK SHARP & DOHME LLC
  Company Number: None

PATIENT
  Sex: Female
  Weight: 37.642 kg

DRUGS (22)
  1. SOTATERCEPT [Suspect]
     Active Substance: SOTATERCEPT
     Route: 058
  2. SOTATERCEPT [Suspect]
     Active Substance: SOTATERCEPT
  3. SOTATERCEPT [Suspect]
     Active Substance: SOTATERCEPT
  4. SOTATERCEPT [Suspect]
     Active Substance: SOTATERCEPT
  5. REMODULIN [Suspect]
     Active Substance: TREPROSTINIL
     Indication: Pulmonary arterial hypertension
     Route: 041
     Dates: start: 20231023
  6. GAVISCON [ALUMINIUM HYDROXIDE;MAGNESIUM CARBONATE] [Concomitant]
  7. IBUPROFEN [Concomitant]
     Active Substance: IBUPROFEN
  8. TYLENOL [Concomitant]
     Active Substance: ACETAMINOPHEN
  9. OPSUMIT [Concomitant]
     Active Substance: MACITENTAN
  10. LASIX [Concomitant]
     Active Substance: FUROSEMIDE
  11. ARNICA MEDIFLOR [Concomitant]
  12. SILDENAFIL CITRATE [Concomitant]
     Active Substance: SILDENAFIL CITRATE
  13. VITAMIN D3 [Concomitant]
     Active Substance: CHOLECALCIFEROL
  14. POTASSIUM CHLORIDE [Concomitant]
     Active Substance: POTASSIUM CHLORIDE
  15. CHLORPHENIRAMINE MALEATE [Concomitant]
     Active Substance: CHLORPHENIRAMINE MALEATE
  16. ALOE VERA;LIDOCAINE [Concomitant]
  17. DIAZEPAM [Concomitant]
     Active Substance: DIAZEPAM
  18. SPIRONOLACTONE [Concomitant]
     Active Substance: SPIRONOLACTONE
  19. VITAMIN C [Concomitant]
     Active Substance: ASCORBIC ACID
  20. LORATADINE [Concomitant]
     Active Substance: LORATADINE
  21. OXYGEN [Concomitant]
     Active Substance: OXYGEN
  22. SODIUM CHLORIDE [Concomitant]
     Active Substance: SODIUM CHLORIDE

REACTIONS (23)
  - Headache [Recovering/Resolving]
  - Sluggishness [Unknown]
  - Fluid retention [Unknown]
  - Decreased activity [Unknown]
  - Gait inability [Unknown]
  - Fatigue [Recovering/Resolving]
  - Back pain [Recovering/Resolving]
  - Dizziness [Recovering/Resolving]
  - Diarrhoea [Recovering/Resolving]
  - Cough [Recovering/Resolving]
  - Malaise [Unknown]
  - Pain [Unknown]
  - Decreased appetite [Unknown]
  - Vomiting [Unknown]
  - Insomnia [Unknown]
  - Flushing [Unknown]
  - Haematocrit increased [Unknown]
  - Haemoglobin increased [Unknown]
  - Laboratory test abnormal [Unknown]
  - Drug ineffective [Unknown]
  - Dyspnoea [Unknown]
  - Muscle spasms [Unknown]
  - Therapy non-responder [Unknown]

NARRATIVE: CASE EVENT DATE: 20240101
